FAERS Safety Report 8492612-3 (Version None)
Quarter: 2012Q2

REPORT INFORMATION
  Report Type: 
  Country: None (occurrence: None)
  Receive Date: 20120629
  Receipt Date: 20120629
  Transmission Date: 20120825
  Serious: Yes (Disabling)
  Sender: FDA-Public Use
  Company Number: None

PATIENT
  Age: 69 Year
  Sex: Female

DRUGS (1)
  1. SIMPONI [Suspect]
     Dosage: 50 MG MONTHLY SQ
     Route: 058
     Dates: start: 20111003, end: 20120627

REACTIONS (5)
  - DYSPNOEA [None]
  - VISUAL FIELD DEFECT [None]
  - MUSCLE SPASMS [None]
  - APNOEA [None]
  - VISUAL IMPAIRMENT [None]
